FAERS Safety Report 5489410-1 (Version None)
Quarter: 2007Q4

REPORT INFORMATION
  Report Type: 
  Country: None (occurrence: None)
  Receive Date: 20071018
  Receipt Date: 20071009
  Transmission Date: 20080405
  Serious: Yes (Other)
  Sender: FDA-Public Use
  Company Number: PT-ELI_LILLY_AND_COMPANY-PT200708004926

PATIENT
  Age: 68 Year
  Sex: Male
  Weight: 70 kg

DRUGS (10)
  1. PEMETREXED [Suspect]
     Indication: NON-SMALL CELL LUNG CANCER
     Dosage: 910 MG,EVERY 3 WEEKS
     Route: 042
     Dates: start: 20070709, end: 20070716
  2. PEMETREXED [Suspect]
     Dosage: UNK, UNKNOWN
     Route: 065
     Dates: start: 20070730, end: 20070716
  3. FOLIC ACID [Concomitant]
     Indication: PREMEDICATION
     Dosage: UNK, UNKNOWN
     Route: 065
  4. VITAMIN B-12 [Concomitant]
     Indication: PREMEDICATION
     Dosage: UNK, UNKNOWN
     Route: 048
  5. DEXAMETHASONE 0.5MG TAB [Concomitant]
     Indication: PREMEDICATION
     Dosage: UNK, UNKNOWN
     Route: 065
  6. TRANSTEC [Concomitant]
     Indication: CANCER PAIN
     Dosage: 35 UG, EVERY HOUR
     Route: 062
     Dates: start: 20070511
  7. ZALDIAR [Concomitant]
     Indication: CANCER PAIN
     Dosage: 35.5 MG, UNK
     Route: 048
     Dates: start: 20070511
  8. METRONIDAZOLE [Concomitant]
     Dosage: 5 MG, UNK
     Route: 048
     Dates: start: 20070511
  9. NEORECORMON [Concomitant]
     Indication: ANAEMIA
     Dosage: 30000 IU, UNKNOWN
     Route: 058
     Dates: start: 20070511
  10. DIAZEPAM [Concomitant]
     Indication: MUSCLE SPASMS
     Dosage: 5 MG, UNKNOWN
     Route: 048
     Dates: start: 20070511

REACTIONS (8)
  - ANXIETY [None]
  - DYSPNOEA [None]
  - MALAISE [None]
  - MUCOSAL INFLAMMATION [None]
  - NAUSEA [None]
  - PRESYNCOPE [None]
  - SYNCOPE [None]
  - VOMITING [None]
